FAERS Safety Report 9185752 (Version 1)
Quarter: 2013Q1

REPORT INFORMATION
  Report Type: Spontaneous
  Country: GB (occurrence: GB)
  Receive Date: 20130325
  Receipt Date: 20130325
  Transmission Date: 20140127
  Serious: Yes (Other)
  Sender: FDA-Public Use
  Company Number: GB-JNJFOC-20130309013

PATIENT
  Age: 40 Year
  Sex: Male
  Weight: 90 kg

DRUGS (7)
  1. CONCERTA XL [Suspect]
     Indication: NARCOLEPSY
     Route: 048
     Dates: start: 20121210, end: 20121217
  2. CONCERTA XL [Suspect]
     Indication: NARCOLEPSY
     Route: 048
     Dates: start: 20121226, end: 20130104
  3. CONCERTA XL [Suspect]
     Indication: NARCOLEPSY
     Route: 048
     Dates: start: 20121218, end: 20121225
  4. ITRACONAZOLE [Concomitant]
     Indication: PRODUCT USED FOR UNKNOWN INDICATION
     Route: 065
  5. AMOXICILLIN [Concomitant]
     Indication: PRODUCT USED FOR UNKNOWN INDICATION
     Route: 065
  6. CETIRIZINE HYDROCHLORIDE [Concomitant]
     Indication: PRODUCT USED FOR UNKNOWN INDICATION
     Route: 065
  7. PROVIGIL [Concomitant]
     Indication: PRODUCT USED FOR UNKNOWN INDICATION
     Route: 065

REACTIONS (4)
  - Impaired work ability [Recovering/Resolving]
  - Anger [Recovering/Resolving]
  - Violence-related symptom [Recovering/Resolving]
  - Off label use [Recovered/Resolved]
